FAERS Safety Report 5948855-3 (Version None)
Quarter: 2008Q4

REPORT INFORMATION
  Report Type: 
  Country: None (occurrence: None)
  Receive Date: 20081111
  Receipt Date: 20081104
  Transmission Date: 20090506
  Serious: Yes (Death)
  Sender: FDA-Public Use
  Company Number: PH-BAXTER-2008BH011996

PATIENT
  Age: 67 Year
  Sex: Female

DRUGS (1)
  1. DIANEAL [Suspect]
     Indication: RENAL DISORDER
     Dosage: DOSE UNIT:UNKNOWN
     Route: 033
     Dates: start: 20081027, end: 20081104

REACTIONS (3)
  - ACUTE MYOCARDIAL INFARCTION [None]
  - ISCHAEMIC CARDIOMYOPATHY [None]
  - RENAL FAILURE CHRONIC [None]
